FAERS Safety Report 6528169-3 (Version None)
Quarter: 2010Q1

REPORT INFORMATION
  Report Type: 
  Country: None (occurrence: None)
  Receive Date: 20100105
  Receipt Date: 20100105
  Transmission Date: 20100710
  Serious: Yes (Other)
  Sender: FDA-Public Use
  Company Number: None

PATIENT
  Age: 44 Year
  Sex: Female
  Weight: 61.9 kg

DRUGS (3)
  1. SAVELLA [Suspect]
     Indication: FIBROMYALGIA
     Dates: start: 20090717, end: 20090808
  2. ENBREL [Concomitant]
  3. VICODIN [Concomitant]

REACTIONS (1)
  - GRAND MAL CONVULSION [None]
